FAERS Safety Report 22273283 (Version 1)
Quarter: 2023Q2

REPORT INFORMATION
  Report Type: Spontaneous
  Country: DE (occurrence: DE)
  Receive Date: 20230502
  Receipt Date: 20230502
  Transmission Date: 20230722
  Serious: Yes (Congenital Anomaly, Other)
  Sender: FDA-Public Use
  Company Number: DE-EMBRYOTOX-202106364

PATIENT
  Age: 1 Day
  Sex: Female
  Weight: 4.278 kg

DRUGS (5)
  1. SERTRALINE [Suspect]
     Active Substance: SERTRALINE HYDROCHLORIDE
     Indication: Depression
     Dosage: 100 MILLIGRAM, DAILY, SINCE 01/21
     Route: 064
     Dates: start: 20210116, end: 20210922
  2. SERTRALINE [Suspect]
     Active Substance: SERTRALINE HYDROCHLORIDE
     Dosage: 50 MILLIGRAM, DAILY, IN GW 33.4
     Route: 064
  3. SERTRALINE [Suspect]
     Active Substance: SERTRALINE HYDROCHLORIDE
     Dosage: 25 MILLIGRAM, DAILY, IN GW 34.5
     Route: 064
  4. BOOSTRIX POLIO [Concomitant]
     Active Substance: DIPHTHERIA AND TETANUS TOXOIDS AND ACELLULAR PERTUSSIS ADSORBED AND INACTIVATED POLIOVIRUS VACCINE
     Indication: Immunisation
     Dosage: UNK
     Route: 064
     Dates: start: 20210825, end: 20210825
  5. VENLAFAXINE [Concomitant]
     Active Substance: VENLAFAXINE HYDROCHLORIDE
     Indication: Depression
     Dosage: 75 MILLIGRAM, DAILY
     Route: 064
     Dates: start: 20210923, end: 20211022

REACTIONS (3)
  - Pulmonary valve stenosis congenital [Unknown]
  - Atrial septal defect [Unknown]
  - Foetal exposure during pregnancy [Unknown]

NARRATIVE: CASE EVENT DATE: 20211001
